FAERS Safety Report 13520715 (Version 1)
Quarter: 2017Q2

REPORT INFORMATION
  Report Type: Spontaneous
  Country: US (occurrence: US)
  Receive Date: 20170508
  Receipt Date: 20170508
  Transmission Date: 20170830
  Serious: No
  Sender: FDA-Public Use
  Company Number: US-TEVA-716647ACC

PATIENT
  Age: 67 Year
  Sex: Female

DRUGS (1)
  1. SORIATANE [Suspect]
     Active Substance: ACITRETIN
     Indication: PSORIATIC ARTHROPATHY
     Dosage: 10 MILLIGRAM DAILY;
     Route: 065
     Dates: start: 201408

REACTIONS (1)
  - Onychoclasis [Unknown]
